FAERS Safety Report 16187852 (Version 2)
Quarter: 2019Q2

REPORT INFORMATION
  Report Type: Spontaneous
  Country: US (occurrence: US)
  Receive Date: 20190412
  Receipt Date: 20190415
  Transmission Date: 20190711
  Serious: Yes (Death)
  Sender: FDA-Public Use
  Company Number: US-CELGENEUS-USA-20190403825

PATIENT
  Age: 77 Year
  Sex: Male
  Weight: 37 kg

DRUGS (1)
  1. REVLIMID [Suspect]
     Active Substance: LENALIDOMIDE
     Indication: PLASMA CELL MYELOMA
     Route: 048
     Dates: start: 2017

REACTIONS (4)
  - Death [Fatal]
  - Asthenia [Unknown]
  - Dysgeusia [Unknown]
  - Weight decreased [Unknown]

NARRATIVE: CASE EVENT DATE: 20180222
